FAERS Safety Report 13519287 (Version 1)
Quarter: 2017Q2

REPORT INFORMATION
  Report Type: Spontaneous
  Country: FR (occurrence: FR)
  Receive Date: 20170505
  Receipt Date: 20170505
  Transmission Date: 20170830
  Serious: Yes (Hospitalization, Other)
  Sender: FDA-Public Use
  Company Number: FR-GLAXOSMITHKLINE-FR2017GSK065112

PATIENT
  Age: 43 Year
  Sex: Female

DRUGS (1)
  1. VOLTARENE [Suspect]
     Active Substance: DICLOFENAC SODIUM
     Indication: BACK PAIN
     Dosage: 1 DF, QD
     Route: 048
     Dates: start: 20161212, end: 20161216

REACTIONS (3)
  - Anaemia [Recovering/Resolving]
  - Intestinal ulcer [Recovered/Resolved]
  - Rectal haemorrhage [Recovered/Resolved]
